FAERS Safety Report 5410849-4 (Version None)
Quarter: 2007Q3

REPORT INFORMATION
  Report Type: 
  Country: None (occurrence: None)
  Receive Date: 20070810
  Receipt Date: 20070731
  Transmission Date: 20080115
  Serious: Yes (Hospitalization)
  Sender: FDA-Public Use
  Company Number: JP-JNJFOC-20070703067

PATIENT
  Sex: Female

DRUGS (6)
  1. LEVOFLOXACIN [Suspect]
     Indication: PYREXIA
     Route: 048
  2. CALONAL [Concomitant]
     Indication: PYREXIA
     Route: 048
  3. LANIRAPID [Concomitant]
     Indication: ATRIAL FIBRILLATION
     Route: 048
  4. KIPRES [Concomitant]
     Indication: ASTHMA
     Route: 048
  5. FLUTIDE DISKUS [Concomitant]
     Indication: ASTHMA
     Route: 055
  6. SEREVENT [Concomitant]
     Indication: ASTHMA
     Route: 055

REACTIONS (1)
  - PULMONARY EOSINOPHILIA [None]
